FAERS Safety Report 20935715 (Version 3)
Quarter: 2022Q3

REPORT INFORMATION
  Report Type: Spontaneous
  Country: NO (occurrence: NO)
  Receive Date: 20220609
  Receipt Date: 20220712
  Transmission Date: 20221026
  Serious: No
  Sender: FDA-Public Use
  Company Number: NO-002147023-NVSC2022NO103328

PATIENT
  Age: 36 Year
  Sex: Male

DRUGS (4)
  1. FENTANYL [Suspect]
     Active Substance: FENTANYL
     Indication: Pain
     Dosage: 100 UG (EVERY OTHER DAY)?STRENGTH 100.00 MCG/HR?EXPIRY DATE-UNKNOWN
     Route: 062
  2. FENTANYL [Suspect]
     Active Substance: FENTANYL
     Dosage: 100 UG (EVERY OTHER DAY)
     Route: 062
  3. FENTANYL [Suspect]
     Active Substance: FENTANYL
     Dosage: 100 UG (EVERY OTHER DAY)
     Route: 062
  4. FENTANYL [Suspect]
     Active Substance: FENTANYL
     Dosage: 100 UG (EVERY OTHER DAY)
     Route: 062

REACTIONS (3)
  - Drug ineffective [Recovering/Resolving]
  - Product adhesion issue [Recovering/Resolving]
  - Pain [Recovering/Resolving]
